FAERS Safety Report 6242509-4 (Version None)
Quarter: 2009Q2

REPORT INFORMATION
  Report Type: 
  Country: None (occurrence: None)
  Receive Date: 20090622
  Receipt Date: 20090622
  Transmission Date: 20091009
  Serious: Yes (Other)
  Sender: FDA-Public Use
  Company Number: None

PATIENT
  Age: 35 Year
  Sex: Female
  Weight: 52.1637 kg

DRUGS (1)
  1. CHANTIX [Suspect]
     Indication: SMOKING CESSATION THERAPY
     Dosage: 1 MG ONCE A DAY PO
     Route: 048
     Dates: start: 20090602, end: 20090618

REACTIONS (10)
  - ABDOMINAL DISTENSION [None]
  - ABDOMINAL PAIN UPPER [None]
  - ABNORMAL DREAMS [None]
  - CONSTIPATION [None]
  - DRUG INTOLERANCE [None]
  - FATIGUE [None]
  - GASTROINTESTINAL DISORDER [None]
  - INITIAL INSOMNIA [None]
  - NAUSEA [None]
  - SLEEP DISORDER [None]
